FAERS Safety Report 5924655-5 (Version None)
Quarter: 2008Q4

REPORT INFORMATION
  Report Type: 
  Country: None (occurrence: None)
  Receive Date: 20081016
  Receipt Date: 20081002
  Transmission Date: 20090506
  Serious: No
  Sender: FDA-Public Use
  Company Number: US024804

PATIENT
  Age: 54 Year
  Sex: Female
  Weight: 87.9978 kg

DRUGS (11)
  1. FENTORA [Suspect]
     Indication: OSTEOARTHRITIS
     Dosage: 200 UG AS NEEDED Q3HR BUCCAL
     Route: 002
     Dates: start: 20080701, end: 20080801
  2. FENTORA [Suspect]
     Indication: SPINAL OSTEOARTHRITIS
     Dosage: 200 UG AS NEEDED Q3HR BUCCAL
     Route: 002
     Dates: start: 20080701, end: 20080801
  3. GLYBURIDE [Concomitant]
  4. ORAMORPH SR [Concomitant]
  5. HYDROCHLOROTHIAZIDE [Concomitant]
  6. SKELAXIN [Concomitant]
  7. LISINOPRIL [Concomitant]
  8. VITAMIN D [Concomitant]
  9. MECLIZINE [Concomitant]
  10. TYLENOL SINUS /00908001/ [Concomitant]
  11. CORTICOSTEROIDS [Concomitant]

REACTIONS (2)
  - APHTHOUS STOMATITIS [None]
  - DRUG PRESCRIBING ERROR [None]
